FAERS Safety Report 23687430 (Version 4)
Quarter: 2024Q2

REPORT INFORMATION
  Report Type: Spontaneous
  Country: US (occurrence: US)
  Receive Date: 20240329
  Receipt Date: 20240411
  Transmission Date: 20240715
  Serious: Yes (Hospitalization, Other)
  Sender: FDA-Public Use
  Company Number: US-PFIZER INC-PV202400041890

PATIENT
  Age: 81 Year
  Sex: Female
  Weight: 82.5 kg

DRUGS (2)
  1. IBRANCE [Suspect]
     Active Substance: PALBOCICLIB
     Indication: Breast cancer metastatic
     Dosage: TAKE 1 CAPSULE DAILY FOR 21 DAYS, FOLLOWED BY 7 DAYS OFF. REPEAT EVERY 28 DAYS.
     Route: 048
  2. IBRANCE [Suspect]
     Active Substance: PALBOCICLIB
     Indication: Metastases to bone

REACTIONS (5)
  - Respiratory syncytial virus infection [Unknown]
  - Pneumonia bacterial [Unknown]
  - Acute respiratory failure [Recovering/Resolving]
  - Pleural effusion [Recovering/Resolving]
  - Asthenia [Recovering/Resolving]

NARRATIVE: CASE EVENT DATE: 20240101
